FAERS Safety Report 14647902 (Version 1)
Quarter: 2018Q1

REPORT INFORMATION
  Report Type: Spontaneous
  Country: PL (occurrence: PL)
  Receive Date: 20180316
  Receipt Date: 20180316
  Transmission Date: 20180509
  Serious: Yes (Other)
  Sender: FDA-Public Use
  Company Number: PL-TEVA-2018-PL-867382

PATIENT
  Age: 65 Year
  Sex: Male
  Weight: 107 kg

DRUGS (5)
  1. METYPRED [Concomitant]
     Active Substance: METHYLPREDNISOLONE
     Indication: RHEUMATOID ARTHRITIS
     Dosage: THERAPY ONGOING
     Route: 048
  2. METHOTREXATE. [Suspect]
     Active Substance: METHOTREXATE
     Indication: RHEUMATOID ARTHRITIS
     Route: 048
     Dates: start: 20070717, end: 20090826
  3. METHOTREXATE. [Suspect]
     Active Substance: METHOTREXATE
     Route: 058
     Dates: start: 20130827, end: 20150408
  4. METHOTREXATE. [Suspect]
     Active Substance: METHOTREXATE
     Route: 058
     Dates: start: 20160831, end: 20160831
  5. SULFASALAZINE. [Concomitant]
     Active Substance: SULFASALAZINE
     Indication: RHEUMATOID ARTHRITIS
     Dosage: THERAPY ONGOING
     Route: 048

REACTIONS (3)
  - Decreased appetite [Recovered/Resolved]
  - Abdominal pain upper [Recovered/Resolved]
  - Nausea [Recovered/Resolved]
